FAERS Safety Report 7267700-X (Version None)
Quarter: 2011Q1

REPORT INFORMATION
  Report Type: 
  Country: None (occurrence: None)
  Receive Date: 20110201
  Receipt Date: 20110127
  Transmission Date: 20110831
  Serious: Yes (Hospitalization)
  Sender: FDA-Public Use
  Company Number: FR-ROCHE-752345

PATIENT
  Age: 30 Year
  Sex: Male

DRUGS (1)
  1. TAMIFLU [Suspect]
     Indication: H1N1 INFLUENZA
     Dosage: FREQUENCY: 2 CAPSULES DAILY
     Route: 065
     Dates: start: 20101227, end: 20101231

REACTIONS (2)
  - PYRAMIDAL TRACT SYNDROME [None]
  - MYOCLONUS [None]
